FAERS Safety Report 12351462 (Version 4)
Quarter: 2016Q4

REPORT INFORMATION
  Report Type: Report from Study
  Country: US (occurrence: US)
  Receive Date: 20160510
  Receipt Date: 20161017
  Transmission Date: 20170207
  Serious: Yes (Hospitalization)
  Sender: FDA-Public Use
  Company Number: US-EISAI MEDICAL RESEARCH-EC-2016-016734

PATIENT
  Age: 54 Year
  Sex: Female
  Weight: 82.1 kg

DRUGS (12)
  1. ERIBULIN [Suspect]
     Active Substance: ERIBULIN
     Indication: TRIPLE NEGATIVE BREAST CANCER
     Route: 041
     Dates: start: 20160216, end: 20160405
  2. PEMBROLIZUMAB. [Suspect]
     Active Substance: PEMBROLIZUMAB
     Indication: TRIPLE NEGATIVE BREAST CANCER
     Route: 041
     Dates: start: 20160216, end: 2016
  3. COMPAZINE [Concomitant]
     Active Substance: PROCHLORPERAZINE MALEATE
  4. IBUPROFEN. [Concomitant]
     Active Substance: IBUPROFEN
  5. FERROUS SULFATE. [Concomitant]
     Active Substance: FERROUS SULFATE
  6. XARELTO [Concomitant]
     Active Substance: RIVAROXABAN
  7. BENZONATATE. [Concomitant]
     Active Substance: BENZONATATE
  8. LOVASTATIN. [Concomitant]
     Active Substance: LOVASTATIN
  9. MEVACOR [Concomitant]
     Active Substance: LOVASTATIN
  10. ERIBULIN [Suspect]
     Active Substance: ERIBULIN
     Route: 041
     Dates: start: 20160420, end: 2016
  11. ONDANSETRON [Concomitant]
     Active Substance: ONDANSETRON
  12. SYNTHROID [Concomitant]
     Active Substance: LEVOTHYROXINE SODIUM

REACTIONS (3)
  - Jugular vein thrombosis [Not Recovered/Not Resolved]
  - Alanine aminotransferase increased [Not Recovered/Not Resolved]
  - Aspartate aminotransferase increased [Not Recovered/Not Resolved]

NARRATIVE: CASE EVENT DATE: 20160508
